FAERS Safety Report 9634083 (Version 2)
Quarter: 2013Q4

REPORT INFORMATION
  Report Type: Report from Study
  Country: BR (occurrence: BR)
  Receive Date: 20131021
  Receipt Date: 20131021
  Transmission Date: 20140711
  Serious: Yes (Other)
  Sender: FDA-Public Use
  Company Number: BR-ABBVIE-13P-020-1136897-00

PATIENT
  Age: 52 Year
  Sex: Female
  Weight: 70 kg

DRUGS (8)
  1. HUMIRA [Suspect]
     Indication: RHEUMATOID ARTHRITIS
     Route: 058
     Dates: start: 20120404, end: 201306
  2. HUMIRA [Suspect]
  3. KETOPROFEN [Concomitant]
     Indication: PAIN
     Route: 048
     Dates: start: 2007
  4. PREDNISONE [Concomitant]
     Indication: ARTHRITIS
     Route: 048
     Dates: start: 2007
  5. FOLIC ACID [Concomitant]
     Indication: ARTHRITIS
     Route: 048
     Dates: start: 2007
  6. TECNOMET [Concomitant]
     Indication: ARTHRITIS
     Dosage: 15 MG DAILY
     Route: 048
     Dates: start: 2007
  7. PROPRANOLOL [Concomitant]
     Indication: HYPERTENSION
     Dosage: 3 TABLETS DAILY
     Route: 048
     Dates: start: 2012
  8. SINVASTATINA [Concomitant]
     Indication: BLOOD CHOLESTEROL ABNORMAL
     Route: 048
     Dates: start: 20130711

REACTIONS (4)
  - Syncope [Recovered/Resolved]
  - Syncope [Recovered/Resolved]
  - Venous occlusion [Unknown]
  - Somnolence [Recovered/Resolved]
